FAERS Safety Report 5936394-5 (Version None)
Quarter: 2008Q4

REPORT INFORMATION
  Report Type: 
  Country: None (occurrence: None)
  Receive Date: 20081030
  Receipt Date: 20081020
  Transmission Date: 20090506
  Serious: Yes (Hospitalization, Other)
  Sender: FDA-Public Use
  Company Number: US-ELI_LILLY_AND_COMPANY-US200810003108

PATIENT
  Sex: Female

DRUGS (5)
  1. CYMBALTA [Suspect]
     Indication: DEPRESSION
     Dates: start: 20071001, end: 20081004
  2. PAXIL [Concomitant]
  3. PREVACID [Concomitant]
  4. CYCLOVIR [Concomitant]
  5. LYRICA [Concomitant]

REACTIONS (4)
  - AGGRESSION [None]
  - PERSONALITY CHANGE [None]
  - PHYSICAL ASSAULT [None]
  - SUICIDE ATTEMPT [None]
